FAERS Safety Report 25140836 (Version 1)
Quarter: 2025Q1

REPORT INFORMATION
  Report Type: Spontaneous
  Country: US (occurrence: None)
  Receive Date: 20250329
  Receipt Date: 20250329
  Transmission Date: 20250408
  Serious: Yes (Hospitalization, Disabling)
  Sender: FDA-CTU
  Company Number: None

PATIENT
  Age: 96 Year
  Sex: Female

DRUGS (1)
  1. COLLAGENASE SANTYL [Suspect]
     Active Substance: COLLAGENASE CLOSTRIDIUM HISTOLYTICUM
     Indication: Wound
     Dosage: 1 APPLICTION  DAILY TOPICAL ?
     Route: 061
     Dates: start: 20250225, end: 20250318

REACTIONS (1)
  - Foot amputation [None]

NARRATIVE: CASE EVENT DATE: 20250319
